FAERS Safety Report 18566340 (Version 1)
Quarter: 2020Q4

REPORT INFORMATION
  Report Type: Spontaneous
  Country: US (occurrence: MX)
  Receive Date: 20201201
  Receipt Date: 20201201
  Transmission Date: 20210114
  Serious: Yes (Hospitalization, Other)
  Sender: FDA-Public Use
  Company Number: MX-BIOMARINAP-MX-2020-133610

PATIENT
  Age: 16 Year
  Sex: Male

DRUGS (1)
  1. ALDURAZYME [Suspect]
     Active Substance: LARONIDASE
     Indication: MUCOPOLYSACCHARIDOSIS I
     Dosage: UNK
     Route: 041
     Dates: start: 2009

REACTIONS (8)
  - Sleep apnoea syndrome [Unknown]
  - Respiratory disorder [Unknown]
  - Device related infection [Unknown]
  - Poor venous access [Unknown]
  - Ear operation [Unknown]
  - Hernia [Unknown]
  - Gait disturbance [Unknown]
  - Hyperkeratosis [Unknown]

NARRATIVE: CASE EVENT DATE: 2009
